FAERS Safety Report 19403244 (Version 1)
Quarter: 2021Q2

REPORT INFORMATION
  Report Type: Spontaneous
  Country: US (occurrence: US)
  Receive Date: 20210610
  Receipt Date: 20210610
  Transmission Date: 20210717
  Serious: Yes (Other)
  Sender: FDA-Public Use
  Company Number: US-FERAPHARMA-2021-US-012760

PATIENT
  Age: 71 Year
  Sex: Male
  Weight: 98 kg

DRUGS (22)
  1. GLUCAGON. [Concomitant]
     Active Substance: GLUCAGON
  2. DEXAMETHASONE (NON?SPECIFIC) [Suspect]
     Active Substance: DEXAMETHASONE
     Indication: COVID-19 PNEUMONIA
     Dosage: 6 MG DAILY
     Route: 048
  3. CHOLECALCIFEROL [Concomitant]
     Active Substance: CHOLECALCIFEROL
  4. DEXTROSE. [Concomitant]
     Active Substance: DEXTROSE
  5. INSULIN ASPART [Concomitant]
     Active Substance: INSULIN ASPART
  6. NORMAL SALINE [Concomitant]
     Active Substance: SODIUM CHLORIDE
  7. ALBUTEROL + IPRATROPIUM [Concomitant]
  8. GLUCOSE [Concomitant]
     Active Substance: DEXTROSE
  9. BENZONATATE. [Concomitant]
     Active Substance: BENZONATATE
  10. BUDESONIDE + FORMOTEROL [Concomitant]
  11. DOCUSATE [Concomitant]
     Active Substance: DOCUSATE
  12. DORZOLAMIDE [Concomitant]
     Active Substance: DORZOLAMIDE
  13. WARFARIN [Suspect]
     Active Substance: WARFARIN
     Indication: PULMONARY EMBOLISM
     Dosage: 5 MG DAILY EVERY TUESDAY AND FRIDAY; 7.5 MG DAILY ON OTHER WEEKDAYS
  14. PANTOPRAZOLE [Concomitant]
     Active Substance: PANTOPRAZOLE
  15. SENNA [Concomitant]
     Active Substance: SENNA LEAF\SENNOSIDES\SENNOSIDES A AND B
  16. METOPROLOL. [Concomitant]
     Active Substance: METOPROLOL
  17. TAMSULOSIN [Concomitant]
     Active Substance: TAMSULOSIN
  18. REMDESIVIR. [Suspect]
     Active Substance: REMDESIVIR
     Indication: COVID-19 PNEUMONIA
     Dosage: 200 MG ONCE; THEN 100 MG DAILY
     Route: 042
  19. ASPIRIN. [Concomitant]
     Active Substance: ASPIRIN
  20. HEPARIN [Concomitant]
     Active Substance: HEPARIN SODIUM
  21. ACETAMINOPHEN. [Concomitant]
     Active Substance: ACETAMINOPHEN
  22. ATORVASTATIN [Concomitant]
     Active Substance: ATORVASTATIN

REACTIONS (2)
  - Drug interaction [Unknown]
  - International normalised ratio increased [Unknown]
